FAERS Safety Report 25115434 (Version 1)
Quarter: 2025Q1

REPORT INFORMATION
  Report Type: Report from Study
  Country: US (occurrence: US)
  Receive Date: 20250324
  Receipt Date: 20250324
  Transmission Date: 20250409
  Serious: Yes (Hospitalization, Other)
  Sender: BAYER HEALTHCARE PHARMACEUTICALS INC.
  Company Number: US-BAYER-2025A027128

PATIENT
  Age: 58 Year
  Sex: Male

DRUGS (16)
  1. STIVARGA [Suspect]
     Active Substance: REGORAFENIB MONOHYDRATE
     Indication: Colon cancer
     Dosage: 160 MG, QD FOR 21 DAYS
     Route: 048
     Dates: start: 20250221
  2. FLONASE ALLERGY RELIEF [Concomitant]
     Active Substance: FLUTICASONE PROPIONATE
     Route: 045
  3. ALBUTEROL SULFATE [Concomitant]
     Active Substance: ALBUTEROL SULFATE
  4. LORATADINE [Concomitant]
     Active Substance: LORATADINE
  5. LINZESS [Concomitant]
     Active Substance: LINACLOTIDE
  6. HYDROXYZINE [Concomitant]
     Active Substance: HYDROXYZINE HYDROCHLORIDE
  7. ESCITALOPRAM [Concomitant]
     Active Substance: ESCITALOPRAM OXALATE
  8. LEVOTHYROXINE SODIUM [Concomitant]
     Active Substance: LEVOTHYROXINE SODIUM
  9. VITAMIN D [Concomitant]
     Active Substance: VITAMIN D NOS
  10. ELIQUIS [Concomitant]
     Active Substance: APIXABAN
  11. AMLODIPINE [Concomitant]
     Active Substance: AMLODIPINE BESYLATE
  12. METOPROLOL SUCCINATE [Concomitant]
     Active Substance: METOPROLOL SUCCINATE
  13. VASCEPA [Concomitant]
     Active Substance: ICOSAPENT ETHYL
  14. PEPCID [Concomitant]
     Active Substance: FAMOTIDINE
  15. SIMVASTATIN [Concomitant]
     Active Substance: SIMVASTATIN
  16. IMODIUM [Concomitant]
     Active Substance: LOPERAMIDE HYDROCHLORIDE

REACTIONS (8)
  - Headache [Not Recovered/Not Resolved]
  - Back pain [Not Recovered/Not Resolved]
  - Visual impairment [Recovered/Resolved]
  - Musculoskeletal chest pain [Not Recovered/Not Resolved]
  - Headache [Recovered/Resolved]
  - Limb discomfort [Not Recovered/Not Resolved]
  - Fatigue [Not Recovered/Not Resolved]
  - Hypoaesthesia [Not Recovered/Not Resolved]

NARRATIVE: CASE EVENT DATE: 20250221
